FAERS Safety Report 21103343 (Version 2)
Quarter: 2022Q3

REPORT INFORMATION
  Report Type: Report from Study
  Country: GB (occurrence: GB)
  Receive Date: 20220720
  Receipt Date: 20220805
  Transmission Date: 20221026
  Serious: Yes (Hospitalization)
  Sender: FDA-Public Use
  Company Number: GB-NOVARTISPH-NVSC2022GB162652

PATIENT
  Sex: Male

DRUGS (1)
  1. OMNITROPE [Suspect]
     Active Substance: SOMATROPIN
     Indication: Growth hormone deficiency
     Dosage: 0.2 MG, QD (VIAL, CARTRIDGES)
     Route: 058

REACTIONS (5)
  - Fall [Unknown]
  - COVID-19 [Unknown]
  - Seizure [Unknown]
  - Speech disorder [Unknown]
  - Limb injury [Unknown]

NARRATIVE: CASE EVENT DATE: 20220701
